FAERS Safety Report 5699341-X (Version None)
Quarter: 2008Q2

REPORT INFORMATION
  Report Type: 
  Country: None (occurrence: None)
  Receive Date: 20080404
  Receipt Date: 20080319
  Transmission Date: 20081010
  Serious: Yes (Hospitalization, Other)
  Sender: FDA-Public Use
  Company Number: 002#2#2008-00133

PATIENT
  Age: 58 Year
  Sex: Female
  Weight: 88.4514 kg

DRUGS (1)
  1. NEUPRO [Suspect]
     Indication: PARKINSON'S DISEASE
     Dosage: 6MG/24H,L IN 1 D,TRANSDERMAL
     Route: 062
     Dates: start: 20071001

REACTIONS (6)
  - ABASIA [None]
  - ASTHMA [None]
  - DYSPNOEA [None]
  - FATIGUE [None]
  - OEDEMA [None]
  - WEIGHT INCREASED [None]
